FAERS Safety Report 25344269 (Version 2)
Quarter: 2025Q2

REPORT INFORMATION
  Report Type: Spontaneous
  Country: SE (occurrence: SE)
  Receive Date: 20250521
  Receipt Date: 20250526
  Transmission Date: 20250717
  Serious: Yes (Death)
  Sender: UCB
  Company Number: None

PATIENT
  Age: 42 Year
  Sex: Female

DRUGS (1)
  1. BIMZELX [Suspect]
     Active Substance: BIMEKIZUMAB-BKZX
     Indication: Psoriasis
     Dates: start: 20241212, end: 20250206

REACTIONS (3)
  - Pulmonary embolism [Fatal]
  - Adenocarcinoma metastatic [Fatal]
  - Thrombophlebitis [Fatal]

NARRATIVE: CASE EVENT DATE: 20250227
